FAERS Safety Report 8468597 (Version 5)
Quarter: 2012Q4

REPORT INFORMATION
  Report Type: Report from Study
  Country: US (occurrence: US)
  Receive Date: 20120320
  Receipt Date: 20121018
  Transmission Date: 20130627
  Serious: Yes (Hospitalization)
  Sender: FDA-Public Use
  Company Number: US-JNJFOC-20120306504

PATIENT
  Age: 6 Year
  Sex: Male
  Weight: 17.7 kg

DRUGS (9)
  1. REMICADE [Suspect]
     Indication: INFLAMMATORY BOWEL DISEASE
     Route: 042
     Dates: start: 201003
  2. HUMIRA [Concomitant]
     Dates: start: 201107
  3. MULTIPLE VITAMIN [Concomitant]
  4. FERROUS SULFATE [Concomitant]
  5. PREDNISONE [Concomitant]
  6. FOLIC ACID [Concomitant]
  7. METHOTREXATE [Concomitant]
  8. PREVACID [Concomitant]
  9. VITAMIN D [Concomitant]

REACTIONS (1)
  - Crohn^s disease [Recovered/Resolved]
